FAERS Safety Report 18225451 (Version 2)
Quarter: 2020Q4

REPORT INFORMATION
  Report Type: Report from Study
  Country: None (occurrence: HU)
  Receive Date: 20200903
  Receipt Date: 20201005
  Transmission Date: 20210113
  Serious: Yes (Death)
  Sender: FDA-Public Use
  Company Number: HU-ABBVIE-20K-076-3549895-00

PATIENT
  Age: 77 Year
  Sex: Male

DRUGS (8)
  1. SEDUXEN [Concomitant]
     Indication: HALLUCINATION
     Dosage: TWO TABLETS IN THE EVENING
     Route: 048
  2. XANAX [Concomitant]
     Active Substance: ALPRAZOLAM
     Indication: ANXIETY
     Dosage: TWO TABLETS IN THE EVENING
     Route: 048
  3. ASENTRA [Concomitant]
     Active Substance: SERTRALINE HYDROCHLORIDE
     Indication: DEPRESSION
     Dosage: IN THE EVENING
     Route: 048
  4. DUODOPA [Suspect]
     Active Substance: CARBIDOPA\LEVODOPA
  5. DUODOPA [Suspect]
     Active Substance: CARBIDOPA\LEVODOPA
     Indication: PARKINSON^S DISEASE
     Dosage: MORNING DOSE: 10 ML; CONTINUOUS DOSE: 3.7 ML/HOUR; EXTRA DOSE: 2.5 ML, 20 MG/ML 5 MG/ML
     Route: 050
     Dates: start: 20170314
  6. CO-RENITEC [Concomitant]
     Active Substance: ENALAPRIL\HYDROCHLOROTHIAZIDE
     Indication: HYPERTENSION
     Dosage: IN THE MORNING
     Route: 048
     Dates: start: 2013
  7. FELODIPINE. [Concomitant]
     Active Substance: FELODIPINE
     Indication: HYPERTENSION
     Dosage: IN THE EVENING
     Route: 048
  8. HALOPERIDOL. [Concomitant]
     Active Substance: HALOPERIDOL
     Indication: HALLUCINATION
     Dosage: 5 DROPS IN THE EVENING,
     Route: 048

REACTIONS (2)
  - Marasmus [Fatal]
  - Asthenia [Fatal]

NARRATIVE: CASE EVENT DATE: 20200819
